FAERS Safety Report 13790650 (Version 1)
Quarter: 2017Q3

REPORT INFORMATION
  Report Type: Spontaneous
  Country: PR (occurrence: US)
  Receive Date: 20170725
  Receipt Date: 20170725
  Transmission Date: 20171127
  Serious: No
  Sender: FDA-Public Use
  Company Number: PR-GALDERMA-PR17000466

PATIENT
  Age: 17 Year
  Sex: Female

DRUGS (3)
  1. CETAPHIL MOISTURIZING LOTION (DIFFERIN BALANCING MOISTURIZER) [Suspect]
     Active Substance: COSMETICS
     Route: 061
     Dates: start: 20170110, end: 20170117
  2. CETAPHIL GENTLE SKIN CLEANSER (DIFFERIN BALANCING CLEANSER) [Suspect]
     Active Substance: COSMETICS
     Route: 061
     Dates: start: 20170110, end: 20170117
  3. DIFFERIN GEL [Suspect]
     Active Substance: ADAPALENE
     Indication: ACNE
     Route: 061
     Dates: start: 20170110, end: 20170118

REACTIONS (8)
  - Rash [Recovered/Resolved]
  - Rash macular [Recovered/Resolved]
  - Eye swelling [Recovered/Resolved]
  - Skin irritation [Recovered/Resolved]
  - Eye pruritus [Recovered/Resolved]
  - Erythema [Recovered/Resolved]
  - Drug ineffective [Recovered/Resolved]
  - Eye infection [Recovered/Resolved]

NARRATIVE: CASE EVENT DATE: 20170111
